FAERS Safety Report 9752095 (Version 3)
Quarter: 2013Q4

REPORT INFORMATION
  Report Type: Report from Study
  Country: BR (occurrence: BR)
  Receive Date: 20131213
  Receipt Date: 20131230
  Transmission Date: 20140711
  Serious: Yes (Other)
  Sender: FDA-Public Use
  Company Number: PHHO2013BR016002

PATIENT
  Age: 67 Year
  Sex: Female
  Weight: 77.4 kg

DRUGS (3)
  1. SOM230 [Suspect]
     Indication: PITUITARY-DEPENDENT CUSHING^S SYNDROME
     Dosage: 0.6 UG/ML, BID
     Route: 058
     Dates: start: 20131125, end: 20131205
  2. SOM230 [Suspect]
     Dosage: 0.3 UG/ML, BID
     Route: 058
     Dates: start: 20131208
  3. BETA BLOCKING AGENTS [Concomitant]

REACTIONS (1)
  - Hyperglycaemia [Recovered/Resolved]
